FAERS Safety Report 19257338 (Version 2)
Quarter: 2021Q3

REPORT INFORMATION
  Report Type: Report from Study
  Country: US (occurrence: US)
  Receive Date: 20210513
  Receipt Date: 20210805
  Transmission Date: 20211014
  Serious: Yes (Hospitalization)
  Sender: FDA-Public Use
  Company Number: US-ASTRAZENECA-2021A404639

PATIENT
  Age: 829 Month
  Sex: Male
  Weight: 103.4 kg

DRUGS (1)
  1. MEDI4736 [Suspect]
     Active Substance: DURVALUMAB
     Indication: HEAD AND NECK CANCER
     Dosage: 1500 MG, TWO WEEKS PRIOR TO RADIATION THERAPY (RT); CONCURRENT WITH RT (70 GY OVER 7 WEEKS): ON W...
     Route: 042
     Dates: start: 20201014

REACTIONS (8)
  - Fall [Not Recovered/Not Resolved]
  - Sinus bradycardia [Not Recovered/Not Resolved]
  - Cognitive disorder [Not Recovered/Not Resolved]
  - Hyperglycaemia [Not Recovered/Not Resolved]
  - Localised oedema [Not Recovered/Not Resolved]
  - Pneumonia aspiration [Not Recovered/Not Resolved]
  - Laryngeal oedema [Not Recovered/Not Resolved]
  - Hypotension [Not Recovered/Not Resolved]

NARRATIVE: CASE EVENT DATE: 20210222
